FAERS Safety Report 4538799-6 (Version None)
Quarter: 2004Q4

REPORT INFORMATION
  Report Type: 
  Country: None (occurrence: None)
  Receive Date: 20041227
  Receipt Date: 20030926
  Transmission Date: 20050328
  Serious: Yes (Other)
  Sender: FDA-Public Use
  Company Number: ES-NOVOPROD-233067

PATIENT
  Age: 71 Year
  Sex: Male
  Weight: 70 kg

DRUGS (5)
  1. NOVONORM 1.0 MG [Suspect]
     Indication: DIABETES MELLITUS NON-INSULIN-DEPENDENT
     Dosage: 3 MG, QD
     Route: 048
     Dates: start: 20030505, end: 20030717
  2. LEXATIN [Concomitant]
     Dosage: 15 MG, QD
     Route: 048
     Dates: start: 20030327
  3. OMEPRAZOLE [Concomitant]
     Dosage: 20 MG, UNK
     Route: 048
     Dates: start: 20030509, end: 20030509
  4. EURADAL [Concomitant]
     Dosage: 10 MG, QD
     Route: 048
     Dates: start: 20030327
  5. SALINE MIXTURE [Concomitant]
     Dates: start: 20030512

REACTIONS (4)
  - CYSTITIS [None]
  - LIPODYSTROPHY ACQUIRED [None]
  - PANCREATIC DISORDER [None]
  - SCAN ABDOMEN ABNORMAL [None]
